FAERS Safety Report 4486519-6 (Version None)
Quarter: 2004Q4

REPORT INFORMATION
  Report Type: 
  Country: None (occurrence: None)
  Receive Date: 20041021
  Receipt Date: 20041008
  Transmission Date: 20050328
  Serious: Yes (Hospitalization)
  Sender: FDA-Public Use
  Company Number: K200401547

PATIENT
  Age: 76 Year
  Sex: Female

DRUGS (8)
  1. ALTACE [Suspect]
     Indication: HYPERTENSION
     Dosage: 2.5 MG, QD, ORAL
     Route: 048
     Dates: start: 20040420
  2. AZATHIOPRINE [Suspect]
     Indication: RHEUMATOID ARTHRITIS
     Dosage: 100 MG, QD, ORAL
     Route: 048
     Dates: start: 20040420, end: 20040630
  3. MIRTAZAPINE [Suspect]
     Indication: DEPRESSION
     Dosage: 45 MG, QD, ORAL
     Route: 048
     Dates: start: 20040501, end: 20040630
  4. VIOXX [Suspect]
     Indication: PAIN
     Dosage: 25 MG, QD, ORAL
     Route: 048
     Dates: start: 20030401, end: 20040630
  5. ACTONEL [Concomitant]
  6. CALCIMAGON-D3 (COLEFCALCIFEROL CARBONATE)CHEWABLE TABLET [Concomitant]
  7. PANTOZOL (PANTOPRAZOLE SODIM)TABLET [Concomitant]
  8. PREDNISOLON (PREDNISOLONE) TABLET [Concomitant]

REACTIONS (3)
  - DRUG INTERACTION [None]
  - PANCYTOPENIA [None]
  - SUICIDE ATTEMPT [None]
